FAERS Safety Report 23015150 (Version 1)
Quarter: 2023Q4

REPORT INFORMATION
  Report Type: Spontaneous
  Country: US (occurrence: None)
  Receive Date: 20231002
  Receipt Date: 20231002
  Transmission Date: 20240109
  Serious: No
  Sender: FDA-Public Use
  Company Number: None

PATIENT
  Sex: Male

DRUGS (14)
  1. MYCOPHENOLIC ACID [Suspect]
     Active Substance: MYCOPHENOLIC ACID
     Indication: Liver transplant
     Dosage: FREQUENCY : EVERY 12 HOURS;?
     Route: 048
     Dates: start: 20220831
  2. ARANESP [Concomitant]
     Active Substance: DARBEPOETIN ALFA
  3. ASPIRIN CHW [Concomitant]
  4. CHLORTHALIDONE [Concomitant]
     Active Substance: CHLORTHALIDONE
  5. FUROSEMIDE [Concomitant]
     Active Substance: FUROSEMIDE
  6. LOKELMA PAK [Concomitant]
  7. MAGNESIUM [Concomitant]
     Active Substance: MAGNESIUM
  8. VITAMINS [Concomitant]
     Active Substance: VITAMINS
  9. NIFEDIPINE [Concomitant]
     Active Substance: NIFEDIPINE
  10. SODIUM BICAR [Concomitant]
  11. TACROLIMUS [Concomitant]
     Active Substance: TACROLIMUS
  12. THIAMINE HYDROCHLORIDE [Concomitant]
     Active Substance: THIAMINE HYDROCHLORIDE
  13. VITAMIN D [Concomitant]
     Active Substance: VITAMIN D NOS
  14. ZARXIO [Concomitant]
     Active Substance: FILGRASTIM-SNDZ

REACTIONS (2)
  - Pneumonia [None]
  - Rhinovirus infection [None]
